FAERS Safety Report 5701549-1 (Version None)
Quarter: 2008Q2

REPORT INFORMATION
  Report Type: 
  Country: None (occurrence: None)
  Receive Date: 20080408
  Receipt Date: 20080403
  Transmission Date: 20081010
  Serious: Yes (Other)
  Sender: FDA-Public Use
  Company Number: CHPA2008US02095

PATIENT
  Age: 68 Year
  Sex: Male

DRUGS (6)
  1. CVS (NXH)(NICOTNE) [Suspect]
     Dosage: 21MG, TRANSDERMAL, 14MG, TRANSDERMAL
     Route: 062
     Dates: start: 20080201, end: 20080201
  2. CVS (NXH)(NICOTNE) [Suspect]
     Dosage: 21MG, TRANSDERMAL, 14MG, TRANSDERMAL
     Route: 062
     Dates: start: 20071229
  3. LIPITOR [Concomitant]
  4. CALCIUM CHANNEL BLOCKERS (NO INGREDIENTS/SUBSTANCES) [Concomitant]
  5. METFORMIN HCL [Concomitant]
  6. GLIMEPIRIDE [Concomitant]

REACTIONS (3)
  - BLOOD GLUCOSE INCREASED [None]
  - CONCOMITANT DISEASE AGGRAVATED [None]
  - SYNCOPE [None]
